FAERS Safety Report 10553584 (Version 1)
Quarter: 2014Q4

REPORT INFORMATION
  Report Type: Spontaneous
  Country: US (occurrence: None)
  Receive Date: 20141023
  Receipt Date: 20141023
  Transmission Date: 20150529
  Serious: No
  Sender: FDA-Public Use
  Company Number: AP356-01281-SPO-US

PATIENT
  Age: 57 Year
  Sex: Female
  Weight: 102.5 kg

DRUGS (4)
  1. AMLODIPINE [Concomitant]
     Active Substance: AMLODIPINE BESYLATE
  2. XANAX [Concomitant]
     Active Substance: ALPRAZOLAM
  3. BELVIQ [Suspect]
     Active Substance: LORCASERIN HYDROCHLORIDE
     Indication: WEIGHT DECREASED
     Dosage: 20 MG, 20 IN 1 D
     Dates: start: 201407, end: 201408
  4. PERCOCET (TYLOX) [Concomitant]

REACTIONS (1)
  - Weight increased [None]

NARRATIVE: CASE EVENT DATE: 201408
